FAERS Safety Report 5256303-4 (Version None)
Quarter: 2007Q1

REPORT INFORMATION
  Report Type: 
  Country: None (occurrence: None)
  Receive Date: 20061204
  Receipt Date: 20060906
  Transmission Date: 20070707
  Serious: No
  Sender: FDA-Public Use
  Company Number: 2006-BP-09862BP

PATIENT
  Age: 83 Year
  Sex: Female

DRUGS (6)
  1. SPIRIVA [Suspect]
     Indication: HYPERSENSITIVITY
     Dosage: 18 MCG (18 MCG, 1 IN 1 D), IH
     Route: 055
     Dates: start: 20060501
  2. LISINOPRIL [Concomitant]
  3. HYDROCHLOROTHIAZIDE [Concomitant]
  4. ZOCOR [Concomitant]
  5. CALCIUM (CALCIUM) [Concomitant]
  6. FOLIC ACID [Concomitant]

REACTIONS (2)
  - NASAL CONGESTION [None]
  - SINUS CONGESTION [None]
